FAERS Safety Report 6714073-4 (Version None)
Quarter: 2010Q2

REPORT INFORMATION
  Report Type: 
  Country: None (occurrence: None)
  Receive Date: 20100504
  Receipt Date: 20100415
  Transmission Date: 20101027
  Serious: Yes (Other)
  Sender: FDA-Public Use
  Company Number: 1-22273926

PATIENT
  Age: 59 Year
  Sex: Female

DRUGS (7)
  1. CIPROFLOXACIN HCL [Suspect]
     Indication: RENAL ABSCESS
     Dosage: 11 G (CUMULATIVE), ORAL
     Route: 048
  2. CIPROFLOXACIN [Suspect]
     Indication: RENAL ABSCESS
     Dosage: 5.2 G (CUMULATIVE), INTRAVENOUS
     Route: 042
     Dates: start: 20070113
  3. LAMIVUDINE [Concomitant]
  4. SPIRONOLACTONE [Concomitant]
  5. FUROSEMIDE [Concomitant]
  6. LACTULOSE [Concomitant]
  7. METRONIDAZOLE [Concomitant]

REACTIONS (11)
  - AGITATION [None]
  - AMMONIA DECREASED [None]
  - BALLISMUS [None]
  - CONFUSIONAL STATE [None]
  - CONTUSION [None]
  - DISTURBANCE IN ATTENTION [None]
  - INJURY [None]
  - IRRITABILITY [None]
  - MENTAL STATUS CHANGES [None]
  - RED BLOOD CELLS URINE POSITIVE [None]
  - WHITE BLOOD CELLS URINE POSITIVE [None]
